FAERS Safety Report 5283332-7 (Version None)
Quarter: 2007Q2

REPORT INFORMATION
  Report Type: 
  Country: None (occurrence: None)
  Receive Date: 20070402
  Receipt Date: 20070320
  Transmission Date: 20071010
  Serious: Yes (Disabling)
  Sender: FDA-Public Use
  Company Number: 2003GB00871

PATIENT
  Age: 26000 Day
  Sex: Female
  Weight: 73 kg

DRUGS (12)
  1. NOLVADEX [Suspect]
     Indication: BREAST CANCER
     Route: 048
     Dates: start: 19980703
  2. GTN SPRAY [Concomitant]
     Indication: ANGINA PECTORIS
     Dosage: STARTED PRE-TRIAL
  3. GLICLAZIDE [Concomitant]
     Indication: DIABETES MELLITUS
     Dosage: STARTED PRE-TRIAL
  4. ATARAX [Concomitant]
     Indication: DERMATITIS ALLERGIC
     Dosage: STARTED PRE-TRIAL
  5. DETRUSITOL [Concomitant]
     Indication: POLLAKIURIA
     Dates: start: 19990209
  6. DIPROSALIC OINTMENT [Concomitant]
     Indication: DRY SKIN
     Dates: start: 19990401
  7. CANESTAN HC [Concomitant]
     Indication: ATROPHIC VULVOVAGINITIS
     Dates: start: 19991216
  8. DIENOESTROL CREAM [Concomitant]
     Indication: ATROPHIC VULVOVAGINITIS
     Dates: start: 19991216
  9. NEOTIGASON [Concomitant]
     Indication: DRY SKIN
     Dates: start: 19990827
  10. INSULIN [Concomitant]
     Indication: DIABETES MELLITUS
     Dates: start: 19991217
  11. GLIBENCLAMIDE [Concomitant]
     Indication: DIABETES MELLITUS
     Dates: start: 19991217
  12. EUMOVATE OINTMENT [Concomitant]
     Indication: RASH
     Dates: start: 20001115

REACTIONS (1)
  - COGNITIVE DISORDER [None]
